FAERS Safety Report 25401183 (Version 1)
Quarter: 2025Q2

REPORT INFORMATION
  Report Type: Spontaneous
  Country: GB (occurrence: GB)
  Receive Date: 20250605
  Receipt Date: 20250605
  Transmission Date: 20250716
  Serious: Yes (Other)
  Sender: ELI LILLY AND COMPANY
  Company Number: None

PATIENT
  Age: 37 Year
  Sex: Female

DRUGS (1)
  1. MOUNJARO [Suspect]
     Active Substance: TIRZEPATIDE
     Indication: Product used for unknown indication
     Route: 065

REACTIONS (5)
  - Increased upper airway secretion [Unknown]
  - Sensation of foreign body [Unknown]
  - Increased viscosity of upper respiratory secretion [Unknown]
  - Choking sensation [Unknown]
  - Hyperchlorhydria [Unknown]
